FAERS Safety Report 5058597-7 (Version None)
Quarter: 2006Q2

REPORT INFORMATION
  Report Type: 
  Country: None (occurrence: None)
  Receive Date: 20060627
  Receipt Date: 20060331
  Transmission Date: 20061013
  Serious: Yes (Hospitalization)
  Sender: FDA-Public Use
  Company Number: 442959

PATIENT
  Age: 53 Year
  Weight: 113.4 kg

DRUGS (4)
  1. XELODA [Suspect]
     Indication: BREAST CANCER METASTATIC
     Dosage: 2000 MG 2 PER DAY ORAL
     Route: 048
     Dates: start: 20060112, end: 20060308
  2. VITAMIN B6 [Concomitant]
  3. ZINC (ZINC NOS) [Concomitant]
  4. LOMOTIL (*ATROPINE SULFATE/*DIPHENOXYLATE HYDROCHLORIDE/*LOPERAMIDE HY [Concomitant]

REACTIONS (1)
  - DIARRHOEA [None]
